FAERS Safety Report 8600595-8 (Version None)
Quarter: 2012Q3

REPORT INFORMATION
  Report Type: 
  Country: None (occurrence: None)
  Receive Date: 20120817
  Receipt Date: 20120809
  Transmission Date: 20120928
  Serious: Yes (Other)
  Sender: FDA-Public Use
  Company Number: US-TEVA-351354USA

PATIENT
  Sex: Female

DRUGS (2)
  1. QVAR 40 [Suspect]
     Indication: ASTHMA
  2. PROAIR HFA [Concomitant]

REACTIONS (2)
  - PNEUMONIA [None]
  - DYSPNOEA [None]
